FAERS Safety Report 24324694 (Version 7)
Quarter: 2025Q3

REPORT INFORMATION
  Report Type: Report from Study
  Country: US (occurrence: US)
  Receive Date: 20240916
  Receipt Date: 20250703
  Transmission Date: 20251020
  Serious: Yes (Hospitalization)
  Sender: SUNOVION
  Company Number: US-SUMITOMO PHARMA SWITZERLAND GMBH-2024SPA002133

PATIENT

DRUGS (2)
  1. ORGOVYX [Suspect]
     Active Substance: RELUGOLIX
     Indication: Prostate cancer
     Route: 048
  2. ORGOVYX [Suspect]
     Active Substance: RELUGOLIX
     Dosage: 120 MG, QD
     Route: 048
     Dates: start: 20240826

REACTIONS (7)
  - Colonoscopy [Unknown]
  - Dyspnoea [Unknown]
  - Nervousness [Unknown]
  - Dizziness [Not Recovered/Not Resolved]
  - Blood pressure increased [Unknown]
  - Hot flush [Unknown]
  - Back pain [Recovering/Resolving]
